FAERS Safety Report 17038505 (Version 1)
Quarter: 2019Q4

REPORT INFORMATION
  Report Type: Other
  Country: US (occurrence: US)
  Receive Date: 20191115
  Receipt Date: 20191115
  Transmission Date: 20200122
  Serious: Yes (Hospitalization)
  Sender: FDA-Public Use
  Company Number: US-INTERCEPT-PM2019001965

PATIENT
  Sex: Female

DRUGS (1)
  1. OCALIVA [Suspect]
     Active Substance: OBETICHOLIC ACID
     Indication: PRIMARY BILIARY CHOLANGITIS
     Dosage: 5 MG, QD
     Route: 048
     Dates: start: 20190715

REACTIONS (4)
  - Vomiting [Unknown]
  - Diarrhoea [Unknown]
  - Hepatic enzyme abnormal [Unknown]
  - Bile duct obstruction [Unknown]

NARRATIVE: CASE EVENT DATE: 2019
